FAERS Safety Report 9437038 (Version 1)
Quarter: 2013Q3

REPORT INFORMATION
  Report Type: Spontaneous
  Country: GB (occurrence: GB)
  Receive Date: 20130802
  Receipt Date: 20130802
  Transmission Date: 20140515
  Serious: Yes (Other)
  Sender: FDA-Public Use
  Company Number: GB-PFIZER INC-2013220955

PATIENT
  Sex: Male

DRUGS (2)
  1. DOXYCYCLINE MONOHYDRATE [Suspect]
     Indication: LOWER RESPIRATORY TRACT INFECTION
     Dosage: UNK
     Dates: end: 2013
  2. STEROIDS [Concomitant]
     Indication: LOWER RESPIRATORY TRACT INFECTION

REACTIONS (1)
  - Chloropsia [Recovered/Resolved]
